FAERS Safety Report 7041780 (Version 3)
Quarter: 2013Q4

REPORT INFORMATION
  Report Type: Report from Study
  Country: TW (occurrence: TW)
  Receive Date: 20090706
  Receipt Date: 20131230
  Transmission Date: 20140711
  Serious: Yes (Hospitalization, Other)
  Sender: FDA-Public Use
  Company Number: TW-BAYER-200924480GPV

PATIENT
  Age: 29 Year
  Sex: Male
  Weight: 50 kg

DRUGS (5)
  1. BETAFERON [Suspect]
     Indication: RELAPSING-REMITTING MULTIPLE SCLEROSIS
     Dosage: 250 ?G, QOD
     Route: 058
     Dates: start: 20090120
  2. INSULIN [Interacting]
     Indication: DIABETES MELLITUS
     Dosage: 300 IU, BID
     Route: 058
     Dates: start: 20081215
  3. BLOOD AND BLOOD FORMING ORGANS [Concomitant]
     Indication: MULTIPLE SCLEROSIS
     Route: 048
     Dates: start: 20090217
  4. NICAMETATE [Concomitant]
     Indication: MULTIPLE SCLEROSIS
     Dosage: 500 MG, TID
     Route: 048
     Dates: start: 20090217
  5. METHYLCOBALAMINE W/THIOCTIC ACID [Concomitant]
     Indication: MULTIPLE SCLEROSIS
     Dosage: 500 ?G, TID
     Route: 048
     Dates: start: 20090217

REACTIONS (5)
  - Jaundice [Recovered/Resolved]
  - Fatigue [None]
  - Aspartate aminotransferase increased [Recovering/Resolving]
  - Alanine aminotransferase increased [Recovering/Resolving]
  - Blood alkaline phosphatase increased [Recovering/Resolving]
